FAERS Safety Report 23149079 (Version 1)
Quarter: 2023Q4

REPORT INFORMATION
  Report Type: Spontaneous
  Country: US (occurrence: US)
  Receive Date: 20231106
  Receipt Date: 20231106
  Transmission Date: 20240109
  Serious: No
  Sender: FDA-Public Use
  Company Number: US-BAYER-2023A157484

PATIENT
  Age: 35 Year
  Sex: Male

DRUGS (1)
  1. ALEVE [Suspect]
     Active Substance: NAPROXEN SODIUM
     Dosage: TWO OF THEM AT 7 AM, TWO OF THEM 4 HOURS LATER MOUTHFUL
     Route: 048

REACTIONS (1)
  - Extra dose administered [Unknown]
